FAERS Safety Report 15278615 (Version 2)
Quarter: 2018Q3

REPORT INFORMATION
  Report Type: Spontaneous
  Country: CZ (occurrence: CZ)
  Receive Date: 20180815
  Receipt Date: 20180905
  Transmission Date: 20181010
  Serious: Yes (Hospitalization, Other)
  Sender: FDA-Public Use
  Company Number: PHHY2018CZ027605

PATIENT
  Age: 62 Year
  Sex: Male

DRUGS (7)
  1. WARFARIN [Suspect]
     Active Substance: WARFARIN
     Indication: DEEP VEIN THROMBOSIS
     Route: 065
  2. PARICALCITOL. [Suspect]
     Active Substance: PARICALCITOL
     Indication: NEPHROPATHY
     Dosage: 1 UG, QD
     Route: 065
  3. ACETYLSALICYLIC ACID [Concomitant]
     Active Substance: ASPIRIN
     Indication: PRODUCT USED FOR UNKNOWN INDICATION
     Route: 065
  4. SEVELAMER [Suspect]
     Active Substance: SEVELAMER
     Indication: NEPHROPATHY
     Route: 065
  5. CALCIUM [Suspect]
     Active Substance: CALCIUM
     Indication: HYPERPARATHYROIDISM SECONDARY
     Dosage: 1000 MG, UNK
     Route: 065
  6. SODIUM BICARBONATE. [Concomitant]
     Active Substance: SODIUM BICARBONATE
     Indication: NEPHROPATHY
     Route: 065
  7. PARICALCITOL. [Suspect]
     Active Substance: PARICALCITOL
     Indication: HYPERPARATHYROIDISM SECONDARY

REACTIONS (6)
  - Therapy non-responder [Unknown]
  - Skin necrosis [Recovered/Resolved]
  - Skin ulcer [Recovered/Resolved]
  - Calciphylaxis [Recovered/Resolved]
  - Bedridden [Recovered/Resolved]
  - Skin disorder [Recovered/Resolved]
